FAERS Safety Report 5240143-6 (Version None)
Quarter: 2007Q1

REPORT INFORMATION
  Report Type: 
  Country: None (occurrence: None)
  Receive Date: 20070216
  Receipt Date: 20070209
  Transmission Date: 20070707
  Serious: Yes (Other)
  Sender: FDA-Public Use
  Company Number: US-PFIZER INC-2007011207

PATIENT
  Age: 21 Year
  Sex: Female

DRUGS (6)
  1. ZOLOFT [Suspect]
     Indication: ANXIETY
     Dosage: DAILY DOSE:150MG
  2. ZOLOFT [Suspect]
     Indication: PANIC REACTION
  3. NEURONTIN [Suspect]
     Dosage: DAILY DOSE:1200MG
  4. ADVAIR DISKUS 100/50 [Suspect]
  5. SEROQUEL [Concomitant]
  6. LAMICTAL [Concomitant]

REACTIONS (3)
  - ANXIETY [None]
  - ARTHRALGIA [None]
  - MEMORY IMPAIRMENT [None]
